FAERS Safety Report 16383610 (Version 1)
Quarter: 2019Q2

REPORT INFORMATION
  Report Type: Spontaneous
  Country: US (occurrence: US)
  Receive Date: 20190531
  Receipt Date: 20190531
  Transmission Date: 20190711
  Serious: Yes (Other)
  Sender: FDA-Public Use
  Company Number: None

PATIENT
  Age: 38 Year
  Sex: Female
  Weight: 91.6 kg

DRUGS (15)
  1. PERJETA [Concomitant]
     Active Substance: PERTUZUMAB
  2. ONDANSETRON [Concomitant]
     Active Substance: ONDANSETRON
  3. VANCOMYCIN ORAL CAPSULE [Concomitant]
  4. KEPPRA [Concomitant]
     Active Substance: LEVETIRACETAM
  5. PANTOPRAZOLE [Concomitant]
     Active Substance: PANTOPRAZOLE
  6. RIVAROXABAN [Concomitant]
     Active Substance: RIVAROXABAN
  7. FISH OIL [Concomitant]
     Active Substance: FISH OIL
  8. VITAMIN B COMPLEX [Concomitant]
     Active Substance: CYANOCOBALAMIN\DEXPANTHENOL\NIACINAMIDE\PYRIDOXINE HYDROCHLORIDE\RIBOFLAVIN 5^-PHOSPHATE SODIUM\THIAMINE HYDROCHLORIDE\VITAMIN B COMPLEX
  9. CEFAZOLIN [Concomitant]
     Active Substance: CEFAZOLIN
  10. CHOLECALCIFEROL [Concomitant]
     Active Substance: CHOLECALCIFEROL
  11. TRASTUZUMAB. [Suspect]
     Active Substance: TRASTUZUMAB
     Indication: BREAST CANCER
     Dosage: ?          OTHER FREQUENCY:ONCE;?
     Route: 042
     Dates: start: 20190505, end: 20190529
  12. POTASSIUM CHLORIDE. [Concomitant]
     Active Substance: POTASSIUM CHLORIDE
  13. K-PHOS NEUTRAL [Concomitant]
     Active Substance: POTASSIUM PHOSPHATE\SODIUM PHOSPHATE
  14. MULTIVITAMIN [Concomitant]
     Active Substance: VITAMINS
  15. VENLAFAXINE [Concomitant]
     Active Substance: VENLAFAXINE HYDROCHLORIDE

REACTIONS (9)
  - Heart rate increased [None]
  - Nausea [None]
  - Defaecation urgency [None]
  - Vomiting [None]
  - Chills [None]
  - Pruritus [None]
  - Infusion related reaction [None]
  - Flushing [None]
  - Dyspnoea [None]

NARRATIVE: CASE EVENT DATE: 20190529
